FAERS Safety Report 8123737-X (Version None)
Quarter: 2012Q1

REPORT INFORMATION
  Report Type: 
  Country: None (occurrence: None)
  Receive Date: 20120208
  Receipt Date: 20120131
  Transmission Date: 20120608
  Serious: No
  Sender: FDA-Public Use
  Company Number: US-B.I. PHARMACEUTICALS,INC./RIDGEFIELD-2012-BP-01853BP

PATIENT
  Sex: Male

DRUGS (8)
  1. DILTIAZEM HCL [Concomitant]
     Indication: CARDIAC DISORDER
     Dosage: 180 MG
     Route: 048
     Dates: start: 20000101
  2. PRADAXA [Suspect]
     Indication: ATRIAL FIBRILLATION
     Dosage: 300 MG
     Route: 048
     Dates: start: 20111101, end: 20120130
  3. SIMVASTATIN [Concomitant]
     Indication: BLOOD CHOLESTEROL INCREASED
     Dosage: 20 MG
     Route: 048
     Dates: start: 20111201
  4. NORCO [Concomitant]
     Indication: BACK PAIN
     Route: 048
     Dates: start: 20110101
  5. VITAMIN B-12 [Concomitant]
     Indication: PROPHYLAXIS
     Dosage: 2000 MG
     Route: 048
     Dates: start: 20111201
  6. FOLIC ACID [Concomitant]
     Indication: PROPHYLAXIS
     Dosage: 800 MG
     Route: 048
     Dates: start: 20111201
  7. METOPROLOL [Concomitant]
     Indication: HYPERTENSION
     Dosage: 200 MG
     Route: 048
     Dates: start: 20000101
  8. RAMIPRIL [Concomitant]
     Indication: CARDIAC DISORDER
     Dosage: 5 MG
     Route: 048
     Dates: start: 20000101

REACTIONS (2)
  - POST PROCEDURAL HAEMORRHAGE [None]
  - INTERNATIONAL NORMALISED RATIO INCREASED [None]
